FAERS Safety Report 16805122 (Version 1)
Quarter: 2019Q4

REPORT INFORMATION
  Report Type: Spontaneous
  Country: US (occurrence: US)
  Receive Date: 20190913
  Receipt Date: 20190913
  Transmission Date: 20200122
  Serious: Yes (Death, Hospitalization)
  Sender: FDA-Public Use
  Company Number: None

PATIENT
  Age: 90 Year
  Sex: Male

DRUGS (8)
  1. ATORVASTATIN [Concomitant]
     Active Substance: ATORVASTATIN
  2. SPIRONOLACTONE. [Concomitant]
     Active Substance: SPIRONOLACTONE
  3. OMEPRAZOLE. [Concomitant]
     Active Substance: OMEPRAZOLE
  4. WARFARIN [Concomitant]
     Active Substance: WARFARIN
  5. VYNDAQEL [Suspect]
     Active Substance: TAFAMIDIS MEGLUMINE
     Indication: AMYLOIDOSIS
     Route: 048
     Dates: start: 20190716
  6. FINASTERIDE. [Concomitant]
     Active Substance: FINASTERIDE
  7. METOPROLOL. [Concomitant]
     Active Substance: METOPROLOL
  8. BUMETANIDE. [Concomitant]
     Active Substance: BUMETANIDE

REACTIONS (1)
  - Cardiac pacemaker insertion [None]
